FAERS Safety Report 6585364-5 (Version None)
Quarter: 2010Q1

REPORT INFORMATION
  Report Type: 
  Country: None (occurrence: None)
  Receive Date: 20100217
  Receipt Date: 20100204
  Transmission Date: 20100710
  Serious: Yes (Hospitalization, Other)
  Sender: FDA-Public Use
  Company Number: US-BAYER-200833874NA

PATIENT
  Age: 10 Year
  Sex: Female
  Weight: 30 kg

DRUGS (15)
  1. CAMPATH [Suspect]
     Indication: RENAL TRANSPLANT
     Dosage: UNIT DOSE: 9 MG
     Route: 042
     Dates: start: 20060213, end: 20060213
  2. CAMPATH [Suspect]
     Dosage: UNIT DOSE: 9 MG
     Route: 042
     Dates: start: 20060215, end: 20060215
  3. SODIUM BICARBONATE [Concomitant]
     Indication: METABOLIC ACIDOSIS
     Dosage: 3 INFUSIONS, THEN ADDED TO IV FLUIDS
     Route: 042
  4. SODIUM BICARBONATE [Concomitant]
     Route: 048
  5. TYLENOL-500 [Concomitant]
     Dates: start: 20060419
  6. BENADRYL [Concomitant]
     Dates: start: 20060425
  7. FLUCONAZOLE [Concomitant]
     Dates: start: 20060215
  8. MULTI-VITAMIN [Concomitant]
     Dates: start: 20060215
  9. POTASSIUM PHOSPHATES [Concomitant]
     Dates: start: 20060215
  10. MAGNESIUM OXIDE [Concomitant]
     Dates: start: 20060215
  11. PRILOSEC [Concomitant]
     Dates: start: 20060222
  12. PROGRAF [Concomitant]
     Dates: start: 20060215, end: 20060220
  13. EPOGEN [Concomitant]
     Dosage: THREE TIMES PRIOR TO DISCHARGE
  14. CELLCEPT [Concomitant]
  15. CELLCEPT [Concomitant]
     Dosage: TOTAL DAILY DOSE: 1000 MG
     Dates: start: 20060914

REACTIONS (1)
  - TRANSPLANT REJECTION [None]
